FAERS Safety Report 6551531-X (Version None)
Quarter: 2010Q1

REPORT INFORMATION
  Report Type: 
  Country: None (occurrence: None)
  Receive Date: 20100126
  Receipt Date: 20100113
  Transmission Date: 20100710
  Serious: Yes (Hospitalization)
  Sender: FDA-Public Use
  Company Number: PHHY2010US02232

PATIENT
  Sex: Female

DRUGS (1)
  1. RECLAST [Suspect]
     Dosage: 5 MG/100ML
     Route: 042
     Dates: start: 20091218

REACTIONS (3)
  - BLOOD CALCIUM DECREASED [None]
  - GASTRIC BYPASS [None]
  - MALABSORPTION [None]
